FAERS Safety Report 8550083 (Version 4)
Quarter: 2013Q1

REPORT INFORMATION
  Report Type: Report from Study
  Country: DE (occurrence: DE)
  Receive Date: 20120507
  Receipt Date: 20130312
  Transmission Date: 20140127
  Serious: Yes (Death, Life-Threatening, Hospitalization)
  Sender: FDA-Public Use
  Company Number: DE-INCYTE CORPORATION-2012IN000743

PATIENT
  Sex: Male
  Weight: 85 kg

DRUGS (5)
  1. INC424 [Suspect]
     Indication: MYELOFIBROSIS
     Dosage: 15 MG, BID
     Route: 048
     Dates: start: 20120228, end: 20120422
  2. LITALIR [Suspect]
  3. L-THYROXIN [Concomitant]
  4. CLOPIDOGREL [Concomitant]
  5. BELOC ZOK [Concomitant]

REACTIONS (4)
  - Pneumonia [Fatal]
  - Renal failure acute [Fatal]
  - Tumour lysis syndrome [Fatal]
  - Acute myocardial infarction [Unknown]
